FAERS Safety Report 6404695-2 (Version None)
Quarter: 2009Q4

REPORT INFORMATION
  Report Type: 
  Country: None (occurrence: None)
  Receive Date: 20091016
  Receipt Date: 20091006
  Transmission Date: 20100525
  Serious: Yes (Other)
  Sender: FDA-Public Use
  Company Number: US-WYE-H11484309

PATIENT
  Age: 21 Year
  Sex: Male

DRUGS (4)
  1. PRISTIQ [Suspect]
     Indication: DEPRESSION
     Dosage: TOOK 5, 50 MG TABLETS (OVERDOSE AMOUNT 250 MG)
     Route: 048
     Dates: start: 20091005, end: 20091005
  2. PRISTIQ [Suspect]
     Indication: ANXIETY
  3. ABILIFY [Concomitant]
  4. ETHANOL [Suspect]
     Dosage: 4 WHITE RUSSIAN COCKTAILS
     Route: 048
     Dates: start: 20091005, end: 20091005

REACTIONS (2)
  - INTENTIONAL OVERDOSE [None]
  - SUICIDE ATTEMPT [None]
